FAERS Safety Report 5604277-6 (Version None)
Quarter: 2008Q1

REPORT INFORMATION
  Report Type: 
  Country: None (occurrence: None)
  Receive Date: 20080123
  Receipt Date: 20080118
  Transmission Date: 20080703
  Serious: Yes (Death)
  Sender: FDA-Public Use
  Company Number: SP01758

PATIENT
  Age: 77 Year
  Sex: Female

DRUGS (1)
  1. OSMOPREP [Suspect]
     Indication: COLONOSCOPY
     Dosage: ORAL
     Route: 048

REACTIONS (2)
  - DIALYSIS [None]
  - RENAL FAILURE ACUTE [None]
